FAERS Safety Report 6986282-0 (Version None)
Quarter: 2010Q3

REPORT INFORMATION
  Report Type: 
  Country: None (occurrence: None)
  Receive Date: 20100915
  Receipt Date: 20090615
  Transmission Date: 20110219
  Serious: No
  Sender: FDA-Public Use
  Company Number: US-WYE-H09768109

PATIENT
  Sex: Female
  Weight: 98.97 kg

DRUGS (5)
  1. PRISTIQ [Suspect]
     Indication: DEPRESSION
     Route: 048
     Dates: start: 20090611
  2. COUMADIN [Concomitant]
  3. XANAX [Concomitant]
  4. LITHIUM CARBONATE [Concomitant]
  5. TOPROL-XL [Concomitant]

REACTIONS (2)
  - ANXIETY [None]
  - DIARRHOEA [None]
